FAERS Safety Report 7276908 (Version 5)
Quarter: 2012Q4

REPORT INFORMATION
  Report Type: 
  Country: JP (occurrence: JP)
  Receive Date: 20100212
  Receipt Date: 20121030
  Transmission Date: 20130627
  Serious: Yes (Other)
  Sender: FDA-Public Use
  Company Number: JP-JNJFOC-20100205385

PATIENT
  Age: 2 Year
  Sex: Female
  Weight: 11 kg

DRUGS (3)
  1. REMICADE [Suspect]
     Indication: KAWASAKI^S DISEASE
     Route: 042
     Dates: start: 20081212, end: 20081212
  2. GAMMAGLOBULIN [Concomitant]
     Route: 030
     Dates: start: 20081206, end: 20081206
  3. GAMMAGLOBULIN [Concomitant]
     Route: 030
     Dates: start: 20081208, end: 20081208

REACTIONS (1)
  - Gait disturbance [Recovered/Resolved]
